FAERS Safety Report 6110477-1 (Version None)
Quarter: 2009Q1

REPORT INFORMATION
  Report Type: 
  Country: None (occurrence: None)
  Receive Date: 20090310
  Receipt Date: 20090227
  Transmission Date: 20090719
  Serious: Yes (Other)
  Sender: FDA-Public Use
  Company Number: PHHY2009SE07327

PATIENT
  Sex: Female

DRUGS (11)
  1. ACLASTA [Suspect]
     Indication: OSTEOPOROSIS
     Dosage: UNK
     Dates: start: 20090218
  2. ENALAPRIL MALEATE [Concomitant]
     Dosage: 20 MG
  3. KALCIPOS-D [Concomitant]
  4. LAKTULOSE [Concomitant]
  5. MIRTAZAPINE [Concomitant]
     Dosage: 30 MG
  6. NITRAZEPAM [Concomitant]
     Dosage: 2.5 MG
  7. OXASCAND [Concomitant]
     Dosage: 10 MG WHEN NEEDED
  8. PREDNISOLONE [Concomitant]
     Dosage: 5 MG/DAY
  9. SIMVASTATIN [Concomitant]
     Dosage: 20 MG
  10. SPIRONOLAKTON [Concomitant]
  11. WARFARIN SODIUM [Concomitant]
     Dosage: 2.5 MG

REACTIONS (7)
  - C-REACTIVE PROTEIN INCREASED [None]
  - FATIGUE [None]
  - INFECTION [None]
  - INFLUENZA LIKE ILLNESS [None]
  - LEUKOCYTOSIS [None]
  - PYREXIA [None]
  - RED BLOOD CELL SEDIMENTATION RATE INCREASED [None]
